FAERS Safety Report 4507786-6 (Version None)
Quarter: 2004Q4

REPORT INFORMATION
  Report Type: 
  Country: None (occurrence: None)
  Receive Date: 20041123
  Receipt Date: 20041116
  Transmission Date: 20050328
  Serious: Yes (Other)
  Sender: FDA-Public Use
  Company Number: AU-ABBOTT-04P-008-0280807-00

PATIENT
  Sex: Female

DRUGS (4)
  1. EPILIM TABLETS [Suspect]
     Indication: EPILEPSY
     Route: 048
  2. SYMBICORT ^ASTRAZENECA^ [Interacting]
     Indication: ASTHMA
     Route: 055
     Dates: start: 20040527
  3. BETAMETHASONE [Concomitant]
     Indication: ECZEMA
     Route: 061
  4. TERBUTALINE SULFATE [Concomitant]
     Indication: ASTHMA
     Route: 055

REACTIONS (2)
  - COMPLEX PARTIAL SEIZURES [None]
  - DRUG INTERACTION [None]
